FAERS Safety Report 6143886-5 (Version None)
Quarter: 2009Q2

REPORT INFORMATION
  Report Type: 
  Country: None (occurrence: None)
  Receive Date: 20090406
  Receipt Date: 20070713
  Transmission Date: 20091009
  Serious: Yes (Death, Other)
  Sender: FDA-Public Use
  Company Number: US-ASTRAZENECA-2006UW24776

PATIENT
  Age: 45 Year
  Sex: Male
  Weight: 104.3 kg

DRUGS (19)
  1. SEROQUEL [Suspect]
     Indication: MENTAL DISORDER
     Route: 048
     Dates: start: 20040101
  2. SEROQUEL [Suspect]
     Dosage: 100-500 MG/DAY
     Route: 048
     Dates: start: 20030310
  3. RISPERDAL [Concomitant]
     Route: 048
     Dates: start: 20030101
  4. ZYPREXA [Concomitant]
     Route: 048
     Dates: start: 20020101
  5. WELLBUTRIN SR [Concomitant]
  6. GLUCOPHAGE [Concomitant]
  7. LISINOPRIL [Concomitant]
  8. LEXAPRO [Concomitant]
  9. VIAGRA [Concomitant]
  10. ABILIFY [Concomitant]
  11. LORAZEPAM [Concomitant]
  12. FLUOXETINE HCL [Concomitant]
  13. NICOTINE [Concomitant]
  14. COGENTIN [Concomitant]
  15. REMERON [Concomitant]
  16. VISTARIL [Concomitant]
  17. ASPIRIN [Concomitant]
  18. VICODIN [Concomitant]
  19. ZOCOR [Concomitant]

REACTIONS (15)
  - ABDOMINAL PAIN [None]
  - COLITIS [None]
  - DEATH [None]
  - DERMAL CYST [None]
  - DIABETES MELLITUS [None]
  - DIPLOPIA [None]
  - DYSURIA [None]
  - FIBULA FRACTURE [None]
  - HEPATIC CIRRHOSIS [None]
  - NIGHTMARE [None]
  - PAIN IN EXTREMITY [None]
  - PARANOIA [None]
  - POLLAKIURIA [None]
  - RESTLESSNESS [None]
  - VISION BLURRED [None]
